FAERS Safety Report 10166126 (Version 1)
Quarter: 2014Q2

REPORT INFORMATION
  Report Type: Report from Study
  Country: NL (occurrence: NL)
  Receive Date: 20140512
  Receipt Date: 20140512
  Transmission Date: 20141212
  Serious: Yes (Hospitalization)
  Sender: FDA-Public Use
  Company Number: NL-JNJFOC-20140419224

PATIENT
  Age: 63 Year
  Sex: Male

DRUGS (1)
  1. ABIRATERONE [Suspect]
     Indication: PROSTATE CANCER
     Route: 048
     Dates: start: 20130626, end: 20130910

REACTIONS (6)
  - Pyrexia [Recovered/Resolved]
  - Flank pain [Recovered/Resolved]
  - Prostate cancer metastatic [Unknown]
  - Nausea [Unknown]
  - Vomiting [Unknown]
  - Abnormal faeces [Unknown]
